FAERS Safety Report 5482030-4 (Version None)
Quarter: 2007Q4

REPORT INFORMATION
  Report Type: 
  Country: None (occurrence: None)
  Receive Date: 20071005
  Receipt Date: 20070925
  Transmission Date: 20080405
  Serious: Yes (Other)
  Sender: FDA-Public Use
  Company Number: 2007BI020460

PATIENT
  Age: 72 Year
  Sex: Male
  Weight: 74.8435 kg

DRUGS (1)
  1. NATALIZUMAB [Suspect]
     Indication: MULTIPLE SCLEROSIS
     Dosage: 300 MG; QM; IV
     Route: 042
     Dates: start: 20070827, end: 20070827

REACTIONS (1)
  - TRANSIENT ISCHAEMIC ATTACK [None]
